FAERS Safety Report 9155903 (Version 1)
Quarter: 2013Q1

REPORT INFORMATION
  Report Type: Report from Study
  Country: JP (occurrence: JP)
  Receive Date: 20130311
  Receipt Date: 20130311
  Transmission Date: 20140127
  Serious: Yes (Death)
  Sender: FDA-Public Use
  Company Number: JP-GILEAD-2012-0065061

PATIENT
  Age: 79 Year
  Sex: Male

DRUGS (11)
  1. AMBRISENTAN [Suspect]
     Indication: PULMONARY ARTERIAL HYPERTENSION
     Dosage: 5MG PER DAY
     Route: 048
     Dates: start: 20120618, end: 20121010
  2. ADCIRCA [Concomitant]
     Indication: PULMONARY ARTERIAL HYPERTENSION
     Dosage: 40MG PER DAY
     Route: 048
     Dates: start: 20120620
  3. REVATIO [Concomitant]
     Indication: PULMONARY ARTERIAL HYPERTENSION
     Route: 048
     Dates: start: 2012, end: 20121009
  4. BAYASPIRIN [Concomitant]
     Route: 048
     Dates: end: 20121009
  5. TAKEPRON [Concomitant]
     Route: 048
     Dates: end: 20121009
  6. FUROSEMIDE [Concomitant]
     Route: 048
     Dates: end: 20121009
  7. ACARDI [Concomitant]
     Route: 048
     Dates: end: 20121009
  8. ALEVIATIN                          /00017401/ [Concomitant]
     Route: 048
     Dates: end: 20121009
  9. WARFARIN [Concomitant]
     Route: 048
     Dates: end: 20121009
  10. VOLIBRIS [Suspect]
     Indication: PULMONARY ARTERIAL HYPERTENSION
     Dosage: 5MG PER DAY
     Route: 048
     Dates: start: 20120618, end: 20121010
  11. ALEVIATIN                          /00017401/ [Concomitant]
     Route: 048
     Dates: end: 20121009

REACTIONS (2)
  - Pneumonia [Fatal]
  - Respiratory failure [Fatal]
